FAERS Safety Report 18193931 (Version 1)
Quarter: 2020Q3

REPORT INFORMATION
  Report Type: Report from Study
  Country: US (occurrence: US)
  Receive Date: 20200825
  Receipt Date: 20200825
  Transmission Date: 20201103
  Serious: Yes (Other)
  Sender: FDA-Public Use
  Company Number: US-PFIZER INC-2020324722

PATIENT
  Age: 68 Year
  Sex: Female

DRUGS (11)
  1. IMBRUVICA [Suspect]
     Active Substance: IBRUTINIB
     Dosage: 420 MG, 1X/DAY (420 MG,1 IN 1 D)
     Route: 048
     Dates: start: 20190513
  2. PREDNISONE. [Suspect]
     Active Substance: PREDNISONE
     Indication: SINUSITIS
     Dosage: UNK
     Dates: end: 20190521
  3. AUGMENTIN [Suspect]
     Active Substance: AMOXICILLIN\CLAVULANATE POTASSIUM
     Indication: EAR PAIN
     Dosage: UNK
  4. CELEBREX [Suspect]
     Active Substance: CELECOXIB
     Indication: ARTHRITIS
     Dosage: UNK
  5. IMBRUVICA [Suspect]
     Active Substance: IBRUTINIB
     Dosage: 420 MG, 1X/DAY (420 MG,1 IN 1 D)
     Route: 048
     Dates: start: 20200124
  6. SULFAMETHOXAZOLE AND TRIMETHOPRIM [Concomitant]
     Active Substance: SULFAMETHOXAZOLE\TRIMETHOPRIM
     Dosage: UNK
  7. IMBRUVICA [Suspect]
     Active Substance: IBRUTINIB
     Indication: CHRONIC LYMPHOCYTIC LEUKAEMIA
     Dosage: 420 MG, 1X/DAY (420 MG,1 IN 1 D)
     Route: 048
     Dates: start: 20190509
  8. GERANIUM [Concomitant]
     Active Substance: GERANIUM
     Dosage: UNK
  9. IMBRUVICA [Suspect]
     Active Substance: IBRUTINIB
     Dosage: 420 MG, 1X/DAY (420 MG,1 IN 1 D)
     Route: 048
     Dates: start: 20190604
  10. HYZAAR [Concomitant]
     Active Substance: HYDROCHLOROTHIAZIDE\LOSARTAN POTASSIUM
     Dosage: UNK
  11. LOSARTAN POTASSIUM/HYDROCHLOROTHIAZIDE [Concomitant]
     Active Substance: HYDROCHLOROTHIAZIDE\LOSARTAN POTASSIUM
     Dosage: UNK

REACTIONS (35)
  - Arthritis [Unknown]
  - Decreased appetite [Unknown]
  - Headache [Unknown]
  - Peripheral swelling [Not Recovered/Not Resolved]
  - Oedema peripheral [Unknown]
  - Head discomfort [Not Recovered/Not Resolved]
  - Ear pain [Unknown]
  - Breast pain [Unknown]
  - Fatigue [Unknown]
  - Anxiety [Unknown]
  - Platelet count decreased [Not Recovered/Not Resolved]
  - Stomatitis [Not Recovered/Not Resolved]
  - Erythema [Unknown]
  - Malaise [Unknown]
  - Sinus disorder [Unknown]
  - Acute sinusitis [Unknown]
  - Ageusia [Unknown]
  - Oral pain [Not Recovered/Not Resolved]
  - Joint swelling [Unknown]
  - Abdominal pain upper [Unknown]
  - Omphalitis [Unknown]
  - White blood cell count increased [Unknown]
  - Pain in extremity [Unknown]
  - Arthralgia [Unknown]
  - Weight loss poor [Unknown]
  - Muscle spasms [Unknown]
  - Asthenia [Unknown]
  - Dyspnoea [Unknown]
  - Dizziness [Unknown]
  - Bacterial infection [Unknown]
  - Panic attack [Unknown]
  - Carpal tunnel syndrome [Not Recovered/Not Resolved]
  - Nausea [Recovered/Resolved]
  - Constipation [Unknown]
  - Contusion [Unknown]

NARRATIVE: CASE EVENT DATE: 201905
